FAERS Safety Report 7588728-6 (Version None)
Quarter: 2011Q3

REPORT INFORMATION
  Report Type: 
  Country: None (occurrence: None)
  Receive Date: 20110705
  Receipt Date: 20110616
  Transmission Date: 20111222
  Serious: No
  Sender: FDA-Public Use
  Company Number: US-B.I. PHARMACEUTICALS,INC./RIDGEFIELD-2011-BP-08926BP

PATIENT
  Sex: Male

DRUGS (7)
  1. PRADAXA [Suspect]
     Indication: ATRIAL FIBRILLATION
     Dosage: 300 MG
  2. HYDROCHLOROTHIAZIDE [Concomitant]
  3. PROSCAR [Concomitant]
  4. ZOCOR [Concomitant]
  5. PRADAXA [Suspect]
     Dosage: 300 MG
  6. DIOVAN HCT [Concomitant]
  7. TOPROL-XL [Concomitant]

REACTIONS (5)
  - CHEST PAIN [None]
  - DIZZINESS [None]
  - BLOOD URINE PRESENT [None]
  - ERUCTATION [None]
  - HAEMORRHAGE [None]
